FAERS Safety Report 8720948 (Version 2)
Quarter: 2012Q4

REPORT INFORMATION
  Report Type: 
  Country: JP (occurrence: JP)
  Receive Date: 20120813
  Receipt Date: 20120828
  Transmission Date: 20130627
  Serious: Yes (Hospitalization)
  Sender: FDA-Public Use
  Company Number: JP-MERCK-1207JPN001653

PATIENT

DRUGS (30)
  1. RINDERON-VG [Suspect]
     Dosage: UNK
     Dates: start: 20120410, end: 20120507
  2. FLAGYL [Suspect]
     Indication: PSEUDOMEMBRANOUS COLITIS
     Dosage: 1000 mg, qd
     Route: 048
     Dates: start: 20120403, end: 20120404
  3. FLAGYL [Suspect]
     Dosage: 1000 mg, qd
     Dates: start: 20120429, end: 20120512
  4. VANCOMYCIN HYDROCHLORIDE [Suspect]
     Indication: SEPSIS
     Dosage: 2 DF, qd
     Route: 048
     Dates: start: 20120405, end: 20120416
  5. VANCOMYCIN HYDROCHLORIDE [Suspect]
     Dosage: 0.5 g, bid
     Dates: start: 20120416, end: 20120429
  6. ZYVOX [Suspect]
     Indication: SEPSIS
     Dosage: 600 mg, bid
     Dates: start: 20120502, end: 20120515
  7. TARGOCID [Concomitant]
     Indication: SEPSIS
     Dosage: 200 mg, qd
     Dates: start: 20120429, end: 20120501
  8. NICORANTA [Concomitant]
     Indication: CORONARY ARTERY DISEASE
     Dosage: 15 mg, qd
     Route: 048
     Dates: start: 20120128
  9. DORNER [Concomitant]
     Dosage: UNK UNK, qd
     Route: 048
     Dates: start: 20120406, end: 20120512
  10. DORNER [Concomitant]
     Dosage: 60 Microgram, UNK
     Route: 048
     Dates: start: 20120517
  11. PLAVIX [Concomitant]
     Indication: MITRAL VALVE REPLACEMENT
     Dosage: 50 mg, qd
     Route: 048
     Dates: start: 20120125, end: 20120512
  12. PLAVIX [Concomitant]
     Dosage: 50 mg, qd
     Route: 048
     Dates: start: 20120517
  13. LEBENIN [Concomitant]
     Indication: PSEUDOMEMBRANOUS COLITIS
     Dosage: 3 g, qd
     Route: 048
     Dates: start: 20120402, end: 20120428
  14. LEBENIN [Concomitant]
     Dosage: 3 g, qd
     Route: 048
     Dates: start: 20120430
  15. ALDACTONE TABLETS [Concomitant]
     Indication: POLYURIA
     Dosage: 50 mg, qd
     Route: 048
     Dates: start: 20120128
  16. ASPARA K [Concomitant]
     Indication: ELECTROLYTE SUBSTITUTION THERAPY
     Dosage: 999 mg, qd
     Route: 048
     Dates: start: 20120402, end: 20120429
  17. ASPARA K [Concomitant]
     Dosage: 999 mg, qd
     Route: 048
     Dates: start: 20120501, end: 20120528
  18. FLUITRAN [Concomitant]
     Indication: POLYURIA
     Dosage: 1 mg, qd
     Route: 048
     Dates: start: 20120208
  19. YUNASUPIN [Concomitant]
     Dosage: 4.5 g, qd
     Dates: start: 20120326, end: 20120405
  20. GENTACIN [Concomitant]
     Dosage: 80 mg, qd
     Dates: start: 20120326, end: 20120405
  21. MYSER (DIFLUPREDNATE) [Concomitant]
     Dosage: UNK
     Dates: start: 20120405
  22. MYSER (DIFLUPREDNATE) [Concomitant]
     Dosage: UNK
     Dates: start: 20120515
  23. PYDOXAL [Concomitant]
     Dosage: 30 mg, qd
     Dates: start: 20120410, end: 20120507
  24. NIZORAL [Concomitant]
     Dosage: UNK
     Dates: start: 20120410, end: 20120507
  25. ALLELOCK [Concomitant]
     Dosage: 10 mg, qd
     Dates: start: 20120430, end: 20120528
  26. PREDONINE [Concomitant]
     Dosage: 20 mg, qd
     Route: 048
     Dates: start: 20120506, end: 20120528
  27. SOL-MELCORT [Concomitant]
     Dosage: 40 mg, UNK
     Dates: start: 20120506, end: 20120506
  28. DERMOVATE [Concomitant]
     Indication: ERYTHEMA MULTIFORME
     Dosage: UNK
     Dates: start: 20120501
  29. HIRUDOID [Concomitant]
     Indication: ERYTHEMA MULTIFORME
     Dosage: UNK
     Dates: start: 20120501
  30. HIRUDOID [Concomitant]
     Dosage: UNK
     Dates: start: 20120515

REACTIONS (1)
  - Platelet count decreased [Recovered/Resolved]
